FAERS Safety Report 5197672-3 (Version None)
Quarter: 2007Q1

REPORT INFORMATION
  Report Type: 
  Country: None (occurrence: None)
  Receive Date: 20070103
  Receipt Date: 20061227
  Transmission Date: 20070707
  Serious: Yes (Hospitalization)
  Sender: FDA-Public Use
  Company Number: FR-PFIZER INC-2006156017

PATIENT
  Age: 85 Year
  Sex: Female
  Weight: 65 kg

DRUGS (5)
  1. ALDACTONE [Suspect]
     Dosage: DAILY DOSE:50MG
  2. ZESTORETIC [Suspect]
     Dosage: DAILY DOSE:20MG
  3. DOMPERIDONE [Concomitant]
  4. SOTALOL HCL [Concomitant]
  5. AMLOR [Concomitant]

REACTIONS (3)
  - DEHYDRATION [None]
  - HYPERKALAEMIA [None]
  - RENAL FAILURE ACUTE [None]
